FAERS Safety Report 4695508-8 (Version None)
Quarter: 2005Q2

REPORT INFORMATION
  Report Type: 
  Country: None (occurrence: None)
  Receive Date: 20050620
  Receipt Date: 20050620
  Transmission Date: 20051028
  Serious: No
  Sender: FDA-Public Use
  Company Number: None

PATIENT
  Age: 49 Year
  Weight: 95 kg

DRUGS (1)
  1. ETOMIDATE [Suspect]
     Indication: LIGHT ANAESTHESIA
     Dosage: 25 MG ONCE IV
     Route: 042
     Dates: start: 20050615, end: 20050615

REACTIONS (2)
  - AGITATION [None]
  - MUSCLE CONTRACTIONS INVOLUNTARY [None]
